FAERS Safety Report 5714860-5 (Version None)
Quarter: 2008Q2

REPORT INFORMATION
  Report Type: 
  Country: None (occurrence: None)
  Receive Date: 20080423
  Receipt Date: 20070305
  Transmission Date: 20081010
  Serious: Yes (Death, Hospitalization, Other)
  Sender: FDA-Public Use
  Company Number: US-BAYER-US-2007-000355

PATIENT
  Age: 72 Year
  Sex: Female
  Weight: 53 kg

DRUGS (10)
  1. LEUKINE [Suspect]
     Indication: NEUTROPENIA
     Route: 058
     Dates: start: 20061219, end: 20061220
  2. TAXOL [Suspect]
     Indication: LUNG NEOPLASM MALIGNANT
     Route: 042
     Dates: start: 20061218, end: 20061218
  3. AVASTIN [Suspect]
     Indication: LUNG NEOPLASM MALIGNANT
     Route: 042
     Dates: start: 20061218, end: 20061219
  4. CARBOPLATIN [Suspect]
     Indication: LUNG NEOPLASM MALIGNANT
     Route: 042
     Dates: start: 20061218, end: 20061218
  5. NEULASTA [Concomitant]
     Indication: NEUTROPENIA
     Route: 058
     Dates: start: 20061220
  6. ZOFRAN [Concomitant]
     Indication: PREMEDICATION
     Dosage: UNIT DOSE: 32 MG
     Route: 042
     Dates: start: 20061218, end: 20061218
  7. DECADRON /CAN/ [Concomitant]
     Indication: PREMEDICATION
     Dosage: UNIT DOSE: 20 MG
     Route: 042
     Dates: start: 20061218, end: 20061218
  8. BENADRYL ^ACHE^ [Concomitant]
     Indication: PREMEDICATION
     Dosage: UNIT DOSE: 25 MG
     Route: 042
     Dates: start: 20061218, end: 20061218
  9. TAGAMET [Concomitant]
     Indication: PREMEDICATION
     Dosage: UNIT DOSE: 300 MG
     Route: 042
     Dates: start: 20061218, end: 20061218
  10. TYLENOL [Concomitant]
     Indication: PREMEDICATION
     Dosage: UNIT DOSE: 650 MG
     Route: 048
     Dates: start: 20061218, end: 20061218

REACTIONS (3)
  - CHEST DISCOMFORT [None]
  - NEUTROPENIA [None]
  - SEPSIS [None]
